FAERS Safety Report 8558293-5 (Version None)
Quarter: 2012Q3

REPORT INFORMATION
  Report Type: 
  Country: None (occurrence: None)
  Receive Date: 20120801
  Receipt Date: 20120724
  Transmission Date: 20120928
  Serious: Yes (Hospitalization)
  Sender: FDA-Public Use
  Company Number: US-ELI_LILLY_AND_COMPANY-US201207007744

PATIENT
  Sex: Female

DRUGS (5)
  1. FORTEO [Suspect]
     Indication: OSTEOPOROSIS
     Dosage: 20 UG, QD
     Dates: start: 20110701, end: 20120401
  2. CELEBREX [Concomitant]
     Dosage: UNK, QD
  3. METHOTREXATE [Concomitant]
     Dosage: UNK, OTHER
  4. HYDROCODONE [Concomitant]
     Dosage: UNK, PRN
  5. PREDNISONE [Concomitant]
     Dosage: UNK, 3/W

REACTIONS (6)
  - RHEUMATOID ARTHRITIS [None]
  - JOINT RANGE OF MOTION DECREASED [None]
  - KNEE ARTHROPLASTY [None]
  - GAIT DISTURBANCE [None]
  - PAIN [None]
  - BLOOD BLISTER [None]
